FAERS Safety Report 7710206-1 (Version None)
Quarter: 2011Q3

REPORT INFORMATION
  Report Type: 
  Country: None (occurrence: None)
  Receive Date: 20110819
  Receipt Date: 20110815
  Transmission Date: 20111222
  Serious: Yes (Hospitalization)
  Sender: FDA-Public Use
  Company Number: BR-001808

PATIENT
  Sex: Female

DRUGS (3)
  1. HIXIZINE [Concomitant]
  2. NAGLAZYME [Suspect]
     Indication: MUCOPOLYSACCHARIDOSIS VI
     Dosage: (INTRAVENOUS (NOT OTHERWISE SPECIFIED)
     Route: 042
     Dates: start: 20071123
  3. KANAKION [Concomitant]

REACTIONS (1)
  - TRACHEAL STENOSIS [None]
